FAERS Safety Report 8096006-4 (Version None)
Quarter: 2012Q1

REPORT INFORMATION
  Report Type: 
  Country: None (occurrence: None)
  Receive Date: 20120129
  Receipt Date: 20111226
  Transmission Date: 20120608
  Serious: No
  Sender: FDA-Public Use
  Company Number: US-ABBOTT-11P-163-0887057-00

PATIENT
  Age: 30 Year
  Sex: Female

DRUGS (4)
  1. DESINADE CREAM [Concomitant]
     Indication: PRODUCT USED FOR UNKNOWN INDICATION
     Dosage: TO FACE,GENITALS,BREAST +PSORIASIS AREAS
  2. IBUPROFEN [Concomitant]
     Indication: PAIN
     Dosage: 400-600 MG 6-8 HOURS
  3. HUMIRA [Suspect]
     Dates: start: 20111202
  4. HUMIRA [Suspect]
     Indication: PSORIATIC ARTHROPATHY
     Dates: start: 20111011, end: 20111025

REACTIONS (10)
  - INCORRECT DOSE ADMINISTERED [None]
  - BLOOD GLUCOSE INCREASED [None]
  - INJECTION SITE HAEMORRHAGE [None]
  - MUSCULOSKELETAL STIFFNESS [None]
  - ABSCESS [None]
  - ARTHRALGIA [None]
  - BACK PAIN [None]
  - PAIN IN EXTREMITY [None]
  - INJECTION SITE HAEMATOMA [None]
  - OEDEMA PERIPHERAL [None]
